FAERS Safety Report 9869414 (Version 1)
Quarter: 2014Q1

REPORT INFORMATION
  Report Type: Report from Study
  Country: US (occurrence: US)
  Receive Date: 20140205
  Receipt Date: 20140205
  Transmission Date: 20141002
  Serious: Yes (Death)
  Sender: FDA-Public Use
  Company Number: PHEH2014US002463

PATIENT
  Sex: Male

DRUGS (1)
  1. GLEEVEC [Suspect]
     Indication: BRAIN NEOPLASM MALIGNANT
     Dosage: 600 MG, QD
     Route: 048

REACTIONS (1)
  - Death [Fatal]
